FAERS Safety Report 4482320-8 (Version None)
Quarter: 2004Q4

REPORT INFORMATION
  Report Type: 
  Country: None (occurrence: None)
  Receive Date: 20041022
  Receipt Date: 20041013
  Transmission Date: 20050328
  Serious: Yes (Hospitalization)
  Sender: FDA-Public Use
  Company Number: DE-MERCK-0410DEU00454

PATIENT
  Age: 80 Year
  Sex: Female

DRUGS (1)
  1. VIOXX [Suspect]
     Indication: GENERAL SYMPTOM
     Route: 048
     Dates: start: 20020101

REACTIONS (2)
  - CARDIAC DISORDER [None]
  - ELECTROCARDIOGRAM T WAVE INVERSION [None]
